FAERS Safety Report 4596392-3 (Version None)
Quarter: 2005Q1

REPORT INFORMATION
  Report Type: 
  Country: None (occurrence: None)
  Receive Date: 20050225
  Receipt Date: 20050214
  Transmission Date: 20050727
  Serious: Yes (Hospitalization)
  Sender: FDA-Public Use
  Company Number: USA-2005-0018773

PATIENT
  Age: 27 Year
  Sex: Female

DRUGS (3)
  1. CEFDITOREN PIVOXIL (SIMILAR TO NDA 21-223) (CEFDITOREN PIVOXIL)OTHER [Suspect]
     Indication: PHARYNGITIS
     Dosage: 300 MG, DAILY, ORAL
     Route: 048
     Dates: start: 20050112, end: 20050115
  2. LOXONIN(LOXOPROFEN SODIUM) [Suspect]
     Indication: PHARYNGITIS
     Dosage: 180 MG, DAILY, ORAL
     Route: 048
     Dates: start: 20050112, end: 20050115
  3. CELESTAMINE (BETAMETHASONE, CHLORPHENAMINE MALEATE) [Concomitant]

REACTIONS (4)
  - ABDOMINAL PAIN UPPER [None]
  - CLOSTRIDIAL INFECTION [None]
  - ENTEROCOLITIS HAEMORRHAGIC [None]
  - GASTROINTESTINAL EROSION [None]
